FAERS Safety Report 12866841 (Version 3)
Quarter: 2016Q4

REPORT INFORMATION
  Report Type: Report from Study
  Country: US (occurrence: US)
  Receive Date: 20161020
  Receipt Date: 20161219
  Transmission Date: 20170207
  Serious: Yes (Hospitalization, Other)
  Sender: FDA-Public Use
  Company Number: US-MALLINCKRODT-T201604929

PATIENT
  Age: 63 Year
  Sex: Female

DRUGS (2)
  1. REPOSITORY CORTICOTROPIN INJECTION [Suspect]
     Active Substance: CORTICOTROPIN
     Indication: SARCOIDOSIS
     Dosage: 60 UNITS/0.75 ML EVERY OTHER DAY
     Route: 058
     Dates: start: 20160407
  2. PREDNISONE. [Concomitant]
     Active Substance: PREDNISONE
     Dosage: UNKNOWN DOSE/FREQUENCY
     Dates: start: 2014

REACTIONS (14)
  - Dyspnoea [Unknown]
  - Chest pain [Unknown]
  - Blood glucose increased [Recovering/Resolving]
  - Renal impairment [Recovering/Resolving]
  - Balance disorder [Unknown]
  - Increased tendency to bruise [Unknown]
  - Nausea [Unknown]
  - Injection site haemorrhage [Unknown]
  - Injection site bruising [Unknown]
  - Back pain [Unknown]
  - Diarrhoea [Unknown]
  - Fatigue [Unknown]
  - Dehydration [Recovering/Resolving]
  - Abdominal discomfort [Unknown]

NARRATIVE: CASE EVENT DATE: 2016
